FAERS Safety Report 4595130-8 (Version None)
Quarter: 2005Q1

REPORT INFORMATION
  Report Type: 
  Country: None (occurrence: None)
  Receive Date: 20050224
  Receipt Date: 20041112
  Transmission Date: 20050727
  Serious: Yes (Hospitalization)
  Sender: FDA-Public Use
  Company Number: GXKR2004GB00590

PATIENT
  Sex: Male
  Weight: 85 kg

DRUGS (1)
  1. PARACETAMOL (NGX) (PARACETAMO) [Suspect]
     Indication: PYREXIA
     Dosage: 1 G, QID, OTHER
     Route: 050

REACTIONS (2)
  - HYPERNATRAEMIA [None]
  - THERAPEUTIC RESPONSE DECREASED [None]
